FAERS Safety Report 5834618-6 (Version None)
Quarter: 2008Q3

REPORT INFORMATION
  Report Type: 
  Country: None (occurrence: None)
  Receive Date: 20080805
  Receipt Date: 20080724
  Transmission Date: 20090109
  Serious: Yes (Other)
  Sender: FDA-Public Use
  Company Number: US-ELI_LILLY_AND_COMPANY-US200704005477

PATIENT
  Sex: Female
  Weight: 53.515 kg

DRUGS (2)
  1. CYMBALTA [Suspect]
     Indication: ARTHRALGIA
     Dosage: 30 MG, DAILY (1/D)
     Route: 048
     Dates: start: 20060413
  2. CYMBALTA [Suspect]
     Dosage: 60 MG, DAILY (1/D)

REACTIONS (16)
  - ANGLE CLOSURE GLAUCOMA [None]
  - CATARACT [None]
  - CHOROIDAL DETACHMENT [None]
  - CONJUNCTIVAL HAEMORRHAGE [None]
  - CORNEAL OEDEMA [None]
  - HYPERACUSIS [None]
  - HYPERMETROPIA [None]
  - ISCHAEMIA [None]
  - MIGRAINE [None]
  - NIGHT BLINDNESS [None]
  - PHOTOPHOBIA [None]
  - PHOTOPSIA [None]
  - PUPILLARY DISORDER [None]
  - PUPILLARY REFLEX IMPAIRED [None]
  - SUTURE RELATED COMPLICATION [None]
  - UVEITIS [None]
